FAERS Safety Report 7783316-0 (Version None)
Quarter: 2011Q3

REPORT INFORMATION
  Report Type: 
  Country: None (occurrence: None)
  Receive Date: 20110928
  Receipt Date: 20110915
  Transmission Date: 20111222
  Serious: Yes (Hospitalization)
  Sender: FDA-Public Use
  Company Number: US-JNJFOC-20110906221

PATIENT
  Age: 18 Month
  Sex: Male

DRUGS (1)
  1. ACETYLSALICYLIC ACID SRT [Suspect]
     Indication: ACCIDENTAL DRUG INTAKE BY CHILD
     Route: 065

REACTIONS (8)
  - ACCIDENTAL OVERDOSE [None]
  - TACHYCARDIA [None]
  - VOMITING [None]
  - COUGH [None]
  - ACCIDENTAL DRUG INTAKE BY CHILD [None]
  - TREMOR [None]
  - ATAXIA [None]
  - RESPIRATORY DISTRESS [None]
